FAERS Safety Report 6617963-6 (Version None)
Quarter: 2010Q1

REPORT INFORMATION
  Report Type: 
  Country: None (occurrence: None)
  Receive Date: 20100308
  Receipt Date: 20100226
  Transmission Date: 20100710
  Serious: Yes (Other)
  Sender: FDA-Public Use
  Company Number: PHHY2010BR11352

PATIENT
  Sex: Female

DRUGS (2)
  1. EXELON [Suspect]
     Indication: DEMENTIA ALZHEIMER'S TYPE
     Dosage: 9 MG/5CM2, 4.6 MG, QD
     Dates: start: 20090601
  2. EXELON [Suspect]
     Dosage: 18MG/10CM2, 9.5 MG, QD
     Route: 062
     Dates: end: 20100201

REACTIONS (4)
  - DELIRIUM [None]
  - DIZZINESS [None]
  - GASTROINTESTINAL MOTILITY DISORDER [None]
  - MEMORY IMPAIRMENT [None]
